FAERS Safety Report 4738269-6 (Version None)
Quarter: 2005Q3

REPORT INFORMATION
  Report Type: 
  Country: None (occurrence: None)
  Receive Date: 20050809
  Receipt Date: 20050802
  Transmission Date: 20060218
  Serious: Yes (Hospitalization)
  Sender: FDA-Public Use
  Company Number: JP-MERCK-0508USA01114

PATIENT
  Age: 27 Year
  Sex: Male

DRUGS (1)
  1. CUPRIMINE [Suspect]
     Indication: HEPATO-LENTICULAR DEGENERATION
     Route: 048

REACTIONS (1)
  - EMPHYSEMA [None]
